FAERS Safety Report 13084586 (Version 1)
Quarter: 2017Q1

REPORT INFORMATION
  Report Type: Spontaneous
  Country: US (occurrence: US)
  Receive Date: 20170104
  Receipt Date: 20170104
  Transmission Date: 20170428
  Serious: Yes (Life-Threatening, Hospitalization, Disabling, Other)
  Sender: FDA-Public Use
  Company Number: None

PATIENT
  Age: 83 Year
  Sex: Female
  Weight: 90.72 kg

DRUGS (20)
  1. SIROLIMUS. [Concomitant]
     Active Substance: SIROLIMUS
  2. PLAVIX [Concomitant]
     Active Substance: CLOPIDOGREL BISULFATE
  3. LIDODERM [Concomitant]
     Active Substance: LIDOCAINE
  4. CALCIUM [Concomitant]
     Active Substance: CALCIUM
  5. SPIRONOLACTONE. [Concomitant]
     Active Substance: SPIRONOLACTONE
  6. O2 [Concomitant]
  7. CARVEDILOL. [Concomitant]
     Active Substance: CARVEDILOL
  8. SNEAKZ [Concomitant]
  9. PREVACID [Concomitant]
     Active Substance: LANSOPRAZOLE
  10. NIASPAN [Concomitant]
     Active Substance: NIACIN
  11. POTASSIUM [Concomitant]
     Active Substance: POTASSIUM
  12. DIAZEPAM. [Concomitant]
     Active Substance: DIAZEPAM
  13. LASIX [Concomitant]
     Active Substance: FUROSEMIDE
  14. GLIPIZIDE. [Concomitant]
     Active Substance: GLIPIZIDE
  15. CPAP [Concomitant]
     Active Substance: DEVICE
  16. JANUVIA [Suspect]
     Active Substance: SITAGLIPTIN PHOSPHATE
     Indication: TYPE 2 DIABETES MELLITUS
     Dosage: ?          QUANTITY:J 7:?6 H ?TH ?5 WW?L).\!?;?
     Route: 048
     Dates: start: 20161124, end: 20161209
  17. TYLENOL [Concomitant]
     Active Substance: ACETAMINOPHEN
  18. ALBUTEROL NEBULIZER ER [Concomitant]
  19. LOVASA [Concomitant]
  20. ASPIRIN. [Concomitant]
     Active Substance: ASPIRIN

REACTIONS (12)
  - Panic attack [None]
  - Blood pressure increased [None]
  - Pain [None]
  - Pulmonary congestion [None]
  - Dry mouth [None]
  - Heart rate increased [None]
  - Lung disorder [None]
  - Nightmare [None]
  - Urinary incontinence [None]
  - Arthralgia [None]
  - Asthenia [None]
  - Dysstasia [None]

NARRATIVE: CASE EVENT DATE: 20161126
